FAERS Safety Report 8169191-3 (Version None)
Quarter: 2012Q1

REPORT INFORMATION
  Report Type: 
  Country: None (occurrence: None)
  Receive Date: 20120227
  Receipt Date: 20120216
  Transmission Date: 20120608
  Serious: Yes (Hospitalization)
  Sender: FDA-Public Use
  Company Number: US-ASTRAZENECA-2012SE04033

PATIENT
  Age: 69 Year
  Sex: Male
  Weight: 81.6 kg

DRUGS (11)
  1. FLUMIST [Concomitant]
  2. METOPROLOL [Concomitant]
  3. SYMBICORT [Suspect]
     Indication: BRONCHITIS
     Dosage: 2 PUFFS TWO TIMES A DAY
     Route: 055
  4. THEOPHYLLINE [Concomitant]
     Indication: DYSPNOEA
  5. ALBUTEROL [Concomitant]
     Indication: CHRONIC OBSTRUCTIVE PULMONARY DISEASE
  6. SINGULAIR [Concomitant]
     Indication: SINUS CONGESTION
  7. SYMBICORT [Suspect]
     Indication: CHRONIC OBSTRUCTIVE PULMONARY DISEASE
     Dosage: 2 PUFFS TWO TIMES A DAY
     Route: 055
  8. LISINOPRIL [Concomitant]
     Indication: BLOOD PRESSURE
  9. SINGULAIR [Concomitant]
     Indication: DYSPNOEA
  10. ATROVENT [Concomitant]
  11. ASPIRIN [Concomitant]
     Indication: CARDIOVASCULAR EVENT PROPHYLAXIS

REACTIONS (6)
  - LOSS OF CONSCIOUSNESS [None]
  - HERPES ZOSTER [None]
  - JOINT DISLOCATION [None]
  - MALAISE [None]
  - DYSPNOEA [None]
  - BLOOD PRESSURE INCREASED [None]
